FAERS Safety Report 5027759-7 (Version None)
Quarter: 2006Q2

REPORT INFORMATION
  Report Type: 
  Country: None (occurrence: None)
  Receive Date: 20060609
  Receipt Date: 20060529
  Transmission Date: 20061013
  Serious: Yes (Life-Threatening, Hospitalization)
  Sender: FDA-Public Use
  Company Number: 2006059854

PATIENT
  Age: 40 Year
  Sex: Male
  Weight: 60 kg

DRUGS (10)
  1. SOLU-MEDROL [Suspect]
     Indication: SPINAL CORD INJURY
     Dosage: INTRAVENOUS
     Route: 042
     Dates: start: 20060406, end: 20060401
  2. METHYCOBAL (MECOBALAMIN) [Concomitant]
  3. NEUTROPIN (ORGAN LYSATE, STANDARDIZED) [Concomitant]
  4. LOXONIN (LOXOPROFEN SODIUM) [Concomitant]
  5. KELNAC (PLAUNOTOL) [Concomitant]
  6. VOLTAREN [Concomitant]
  7. SENNOSIDE A+B [Concomitant]
  8. LAXOBERON (SODIUM PICOSULFATE) [Concomitant]
  9. ACTIT (MAGNESIUM CHLORIDE ANHYDROUS, MALTOSE, POTASSIUM CHLORIDE, POTA [Concomitant]
  10. ALL OTHER THERAPEUTIC PRODUCTS [Concomitant]

REACTIONS (2)
  - ANAEMIA [None]
  - FOLATE DEFICIENCY [None]
